FAERS Safety Report 9181198 (Version 1)
Quarter: 2013Q1

REPORT INFORMATION
  Report Type: Spontaneous
  Country: US (occurrence: US)
  Receive Date: 20130322
  Receipt Date: 20130322
  Transmission Date: 20140127
  Serious: Yes (Hospitalization)
  Sender: FDA-Public Use
  Company Number: US-PFIZER INC-2013091779

PATIENT
  Age: 45 Year
  Sex: Female

DRUGS (4)
  1. NEURONTIN [Suspect]
     Dosage: UNK
  2. FENTANYL [Suspect]
     Dosage: UNK
  3. PHENERGAN [Suspect]
     Dosage: UNK
  4. BUTRANS [Suspect]
     Dosage: 10 UG, UNK

REACTIONS (5)
  - Pain [Unknown]
  - Withdrawal syndrome [Unknown]
  - Crying [Unknown]
  - Depression [Unknown]
  - Vomiting [Unknown]
